FAERS Safety Report 6996422-5 (Version None)
Quarter: 2010Q3

REPORT INFORMATION
  Report Type: 
  Country: None (occurrence: None)
  Receive Date: 20100918
  Receipt Date: 20090317
  Transmission Date: 20110219
  Serious: Yes (Other)
  Sender: FDA-Public Use
  Company Number: US-WYE-H08626809

PATIENT
  Sex: Female

DRUGS (6)
  1. PREMPRO [Suspect]
  2. ACTIVELLA [Suspect]
  3. PROVERA [Suspect]
  4. FEMHRT [Suspect]
  5. PREMARIN [Suspect]
  6. MEDROXYPROGESTERONE ACETATE [Suspect]

REACTIONS (2)
  - BENIGN BREAST NEOPLASM [None]
  - CEREBROVASCULAR ACCIDENT [None]
